FAERS Safety Report 20170075 (Version 1)
Quarter: 2021Q4

REPORT INFORMATION
  Report Type: Spontaneous
  Country: NL (occurrence: NL)
  Receive Date: 20211210
  Receipt Date: 20211210
  Transmission Date: 20220303
  Serious: Yes (Hospitalization)
  Sender: FDA-Public Use
  Company Number: None

PATIENT
  Age: 84 Year
  Sex: Female
  Weight: 63.2 kg

DRUGS (5)
  1. QUETIAPINE [Suspect]
     Active Substance: QUETIAPINE
     Indication: Depression
     Dosage: 3DD: MORNING 2,5 ; AFTERNOON 2 ; EVENING 1, QUETIAPINE TABLET FO , THERAPY END DATE : ASKU , UNIT DO
     Dates: start: 202108
  2. MACROGOL/SALTS (MOVIC/MOLAX/LAXT/GEN) [Concomitant]
     Dosage: POWDER FOR DRINK , THERAPY START DATE AND END DATE : ASKU
  3. CALCIUMCARB/COLECALC / CALCI CHEW D3 [Concomitant]
     Dosage: 1.25 G (GRAMS)/800 UNITS , STRENGTH : 1,25G/800IE (500MG CA) ,THERAPY START DATE AND END DATE : ASKU
  4. MELATONIN [Concomitant]
     Active Substance: MELATONIN
     Dosage: 3 MG (MILLIGRAM) ,THERAPY START DATE AND END DATE : ASKU
  5. ACETAMINOPHEN [Concomitant]
     Active Substance: ACETAMINOPHEN
     Dosage: 500 MG (MILLIGRAM) , THERAPY START DATE AND END DATE : ASKU

REACTIONS (6)
  - Confusional state [Recovered/Resolved]
  - Movement disorder [Recovered/Resolved]
  - Anal incontinence [Recovered/Resolved]
  - Musculoskeletal stiffness [Recovered/Resolved]
  - Urinary incontinence [Recovered/Resolved]
  - Hyponatraemia [Recovered/Resolved]

NARRATIVE: CASE EVENT DATE: 20211115
